FAERS Safety Report 15170502 (Version 2)
Quarter: 2019Q4

REPORT INFORMATION
  Report Type: Spontaneous
  Country: DE (occurrence: DE)
  Receive Date: 20180720
  Receipt Date: 20191202
  Transmission Date: 20200122
  Serious: Yes (Hospitalization, Other)
  Sender: FDA-Public Use
  Company Number: DE-SA-2018SA155437

PATIENT
  Age: 48 Year
  Sex: Male
  Weight: 76 kg

DRUGS (21)
  1. FLUOROURACIL. [Suspect]
     Active Substance: FLUOROURACIL
     Dosage: 4650 MG, UNK
     Route: 042
     Dates: start: 20180516, end: 20181106
  2. FOLINIC ACID [Suspect]
     Active Substance: LEUCOVORIN
     Dosage: 400 MG
     Route: 065
     Dates: start: 20190326
  3. FERROSANOL [Concomitant]
     Active Substance: FERROUS GLUCONATE
     Dosage: 100 MG, QW
     Route: 048
     Dates: start: 20180514, end: 20181030
  4. DOXY M [DOXYCYCLINE] [Concomitant]
     Indication: PROPHYLAXIS
     Dosage: 100 MG, QD
     Route: 048
     Dates: start: 20180516, end: 20181017
  5. VECTIBIX [Suspect]
     Active Substance: PANITUMUMAB
     Dosage: 480 MG, UNK
     Route: 042
     Dates: start: 20190226, end: 20190312
  6. FLUOROURACIL. [Suspect]
     Active Substance: FLUOROURACIL
     Indication: COLORECTAL CANCER METASTATIC
     Dosage: 800 MG, UNK
     Route: 040
     Dates: start: 20180516, end: 20190312
  7. OXALIPLATIN. [Suspect]
     Active Substance: OXALIPLATIN
     Indication: COLORECTAL CANCER METASTATIC
     Dosage: 165 MG, UNK
     Route: 065
     Dates: start: 20180516, end: 20180814
  8. FOLINIC ACID [Suspect]
     Active Substance: LEUCOVORIN
     Dosage: 780 MG, UNK
     Route: 065
     Dates: start: 20190226, end: 20190312
  9. VECTIBIX [Suspect]
     Active Substance: PANITUMUMAB
     Dosage: 6 MG, UNK
     Route: 042
     Dates: start: 20190326
  10. FLUOROURACIL. [Suspect]
     Active Substance: FLUOROURACIL
     Dosage: 2400 MG, UNK
     Route: 040
     Dates: start: 20190326
  11. FLUOROURACIL. [Suspect]
     Active Substance: FLUOROURACIL
     Dosage: 400 MG, UNK
     Route: 040
     Dates: start: 20190326
  12. GLANDOMED [Concomitant]
     Dosage: 40 ML, QD
     Route: 048
     Dates: start: 20180516
  13. FLUOROURACIL. [Suspect]
     Active Substance: FLUOROURACIL
     Dosage: 4750 UNK
     Route: 042
     Dates: start: 20190226, end: 20190312
  14. VECTIBIX [Suspect]
     Active Substance: PANITUMUMAB
     Indication: COLORECTAL CANCER METASTATIC
     Dosage: 460 MG, UNK
     Route: 042
     Dates: start: 20180516, end: 20180529
  15. MONO EMBOLEX [Concomitant]
     Active Substance: CERTOPARIN SODIUM
     Indication: PROPHYLAXIS
     Dosage: 3000 IU, QD
     Route: 058
     Dates: start: 20180412, end: 20180518
  16. FERROSANOL [Concomitant]
     Active Substance: FERROUS GLUCONATE
     Indication: ANAEMIA
     Dosage: 80 MG, TID
     Route: 048
     Dates: start: 20180514, end: 20181030
  17. OXALIPLATIN. [Suspect]
     Active Substance: OXALIPLATIN
     Dosage: 135 MG, UNK
     Route: 065
     Dates: start: 20190226, end: 20190312
  18. OXALIPLATIN. [Suspect]
     Active Substance: OXALIPLATIN
     Dosage: 85 MG, UNK
     Route: 065
     Dates: start: 20190326
  19. FOLINIC ACID [Suspect]
     Active Substance: LEUCOVORIN
     Indication: COLORECTAL CANCER METASTATIC
     Dosage: 780 MG, UNK
     Route: 065
     Dates: start: 20180516, end: 20181106
  20. GLANDOMED [Concomitant]
     Indication: PROPHYLAXIS
     Dosage: 20 ML, TID
     Route: 048
     Dates: start: 20180516
  21. PLIAZON [PHYTOMENADIONE;UREA] [Concomitant]
     Indication: PROPHYLAXIS
     Dosage: UNK, PRN
     Route: 061
     Dates: start: 20180516, end: 20181029

REACTIONS (9)
  - Infection [Recovered/Resolved]
  - Constipation [Not Recovered/Not Resolved]
  - Fatigue [Not Recovered/Not Resolved]
  - Mucosal inflammation [Not Recovered/Not Resolved]
  - Epistaxis [Not Recovered/Not Resolved]
  - Hypocalcaemia [Unknown]
  - Lymphocyte count decreased [Recovered/Resolved]
  - Dermatitis acneiform [Not Recovered/Not Resolved]
  - Hypertension [Recovered/Resolved]

NARRATIVE: CASE EVENT DATE: 20180517
